FAERS Safety Report 18299467 (Version 1)
Quarter: 2020Q3

REPORT INFORMATION
  Report Type: Spontaneous
  Country: US (occurrence: US)
  Receive Date: 20200920
  Receipt Date: 20200920
  Transmission Date: 20201103
  Serious: No
  Sender: FDA-Public Use
  Company Number: None

PATIENT
  Age: 72 Year
  Sex: Female
  Weight: 58.5 kg

DRUGS (1)
  1. SLATE BRAND HAND SANITIZER [Suspect]
     Active Substance: ALCOHOL
     Indication: COVID-19 PROPHYLAXIS
     Route: 061

REACTIONS (2)
  - Incorrect route of product administration [None]
  - Product packaging confusion [None]

NARRATIVE: CASE EVENT DATE: 20200918
